FAERS Safety Report 16508156 (Version 1)
Quarter: 2019Q3

REPORT INFORMATION
  Report Type: Spontaneous
  Country: US (occurrence: US)
  Receive Date: 20190702
  Receipt Date: 20190702
  Transmission Date: 20191004
  Serious: Yes (Other)
  Sender: FDA-Public Use
  Company Number: US-ROCHE-2136567

PATIENT
  Age: 58 Year
  Sex: Male

DRUGS (1)
  1. XELODA [Suspect]
     Active Substance: CAPECITABINE
     Indication: PRODUCT USED FOR UNKNOWN INDICATION
     Route: 048
     Dates: start: 20170812, end: 20180606

REACTIONS (4)
  - Balance disorder [Unknown]
  - Joint stiffness [Unknown]
  - Cerebrovascular accident [Unknown]
  - Fatigue [Unknown]

NARRATIVE: CASE EVENT DATE: 20180520
